FAERS Safety Report 17591564 (Version 1)
Quarter: 2020Q1

REPORT INFORMATION
  Report Type: Spontaneous
  Country: US (occurrence: US)
  Receive Date: 20200326
  Receipt Date: 20200326
  Transmission Date: 20200409
  Serious: Yes (Hospitalization)
  Sender: FDA-Public Use
  Company Number: None

PATIENT
  Age: 3 Year
  Sex: Male
  Weight: 15.2 kg

DRUGS (1)
  1. ETOPOSIDE (VP-16) [Suspect]
     Active Substance: ETOPOSIDE
     Dates: end: 20200323

REACTIONS (3)
  - Condition aggravated [None]
  - Hypertension [None]
  - Renal artery stenosis [None]

NARRATIVE: CASE EVENT DATE: 20200323
